FAERS Safety Report 9256542 (Version 1)
Quarter: 2013Q2

REPORT INFORMATION
  Report Type: Spontaneous
  Country: JP (occurrence: JP)
  Receive Date: 20130426
  Receipt Date: 20130426
  Transmission Date: 20140414
  Serious: Yes (Other)
  Sender: FDA-Public Use
  Company Number: JP-ROCHE-1217404

PATIENT
  Age: 43 Year
  Sex: Female

DRUGS (2)
  1. COPEGUS [Suspect]
     Indication: CHRONIC HEPATITIS C
     Dosage: DOSAGE IS UNCERTAIN.
     Route: 048
  2. PEGINTRON [Suspect]
     Indication: CHRONIC HEPATITIS C
     Dosage: DOSAGE IS UNCERTAIN.
     Route: 058

REACTIONS (4)
  - Pyrexia [Unknown]
  - Alopecia [Unknown]
  - Restlessness [Unknown]
  - Laceration [Unknown]
